FAERS Safety Report 9851713 (Version 4)
Quarter: 2014Q1

REPORT INFORMATION
  Report Type: Report from Study
  Country: FR (occurrence: FR)
  Receive Date: 20140129
  Receipt Date: 20140203
  Transmission Date: 20141002
  Serious: Yes (Hospitalization)
  Sender: FDA-Public Use
  Company Number: FR-ROCHE-615001

PATIENT
  Age: 58 Year
  Sex: Male
  Weight: 124 kg

DRUGS (36)
  1. RITUXIMAB [Suspect]
     Indication: RHEUMATOID ARTHRITIS
     Dosage: DRUG REPORTED AS: MABTHERA POLYARTHRITIS
     Route: 042
  2. RITUXIMAB [Interacting]
     Dosage: THE DRUG WAS REINTRODUCED.
     Route: 042
  3. RITUXIMAB [Interacting]
     Route: 042
  4. RITUXIMAB [Interacting]
     Route: 042
  5. RITUXIMAB [Interacting]
     Route: 042
  6. RITUXIMAB [Interacting]
     Route: 042
  7. RITUXIMAB [Interacting]
     Route: 042
  8. RITUXIMAB [Interacting]
     Route: 042
  9. RITUXIMAB [Interacting]
     Route: 042
  10. RITUXIMAB [Interacting]
     Route: 042
  11. RITUXIMAB [Interacting]
     Route: 042
  12. RITUXIMAB [Interacting]
     Route: 042
  13. RITUXIMAB [Interacting]
     Route: 042
  14. RITUXIMAB [Interacting]
     Route: 042
  15. NOVATREX (METHOTREXATE) [Interacting]
     Indication: RHEUMATOID ARTHRITIS
     Route: 048
  16. SPECIAFOLDINE [Concomitant]
  17. FLUINDIONE [Concomitant]
     Indication: ANTIPHOSPHOLIPID SYNDROME
     Dosage: FREQUENCY: PER DAY.
     Route: 048
  18. AMAREL [Concomitant]
     Indication: TYPE 2 DIABETES MELLITUS
     Route: 048
  19. TAHOR [Concomitant]
     Route: 048
  20. NISIS [Concomitant]
     Route: 048
  21. SPECIAFOLDINE [Concomitant]
  22. FOSAMAX [Concomitant]
  23. OMEPRAZOLE [Concomitant]
  24. METHOTREXATE [Concomitant]
     Route: 065
     Dates: start: 20080827
  25. METHOTREXATE [Concomitant]
     Route: 065
     Dates: start: 20090416
  26. METHOTREXATE [Concomitant]
     Route: 065
     Dates: start: 20100111
  27. METHOTREXATE [Concomitant]
     Route: 065
     Dates: start: 20100927
  28. METHOTREXATE [Concomitant]
     Route: 065
     Dates: start: 20110526
  29. METHOTREXATE [Concomitant]
     Route: 065
     Dates: start: 20120130
  30. METHOTREXATE [Concomitant]
     Route: 065
     Dates: start: 20120814
  31. CORTANCYL [Concomitant]
     Route: 065
     Dates: start: 20080827
  32. CORTANCYL [Concomitant]
     Route: 065
     Dates: start: 20090416
  33. CORTANCYL [Concomitant]
     Route: 065
     Dates: start: 20100111
  34. CORTANCYL [Concomitant]
     Route: 065
     Dates: start: 20100927
  35. GLIMEPIRIDE [Concomitant]
  36. PREVISCAN (FRANCE) [Concomitant]

REACTIONS (12)
  - Pseudomonas infection [Recovered/Resolved]
  - Bursitis [Recovered/Resolved]
  - Drug interaction [Unknown]
  - Viral infection [Recovered/Resolved]
  - Hepatocellular injury [Not Recovered/Not Resolved]
  - Diabetes mellitus inadequate control [Unknown]
  - Erysipelas [Not Recovered/Not Resolved]
  - Skin ulcer [Not Recovered/Not Resolved]
  - Tonsillitis [Recovered/Resolved]
  - Nasopharyngitis [Recovered/Resolved]
  - Ear infection [Recovered/Resolved]
  - Complex regional pain syndrome [Not Recovered/Not Resolved]
